FAERS Safety Report 4470403-8 (Version None)
Quarter: 2004Q3

REPORT INFORMATION
  Report Type: 
  Country: None (occurrence: None)
  Receive Date: 20040910
  Receipt Date: 20040727
  Transmission Date: 20050211
  Serious: Yes (Disabling)
  Sender: FDA-Public Use
  Company Number: 2004-00284

PATIENT
  Age: 82 Year
  Sex: Male
  Weight: 66.2 kg

DRUGS (1)
  1. VELCADE [Suspect]
     Indication: MULTIPLE MYELOMA
     Dosage: 2.25 MG, IV BOLUS
     Route: 040
     Dates: start: 20040506, end: 20040708

REACTIONS (1)
  - NEUROPATHY PERIPHERAL [None]
